FAERS Safety Report 5273302-7 (Version None)
Quarter: 2007Q1

REPORT INFORMATION
  Report Type: 
  Country: None (occurrence: None)
  Receive Date: 20070319
  Receipt Date: 20070308
  Transmission Date: 20070707
  Serious: Yes (Other)
  Sender: FDA-Public Use
  Company Number: SPV1-2006-02237

PATIENT
  Sex: Female

DRUGS (16)
  1. MIDON(MIDODRINE HYDROCHLORIDE) TABLET [Suspect]
     Indication: ORTHOSTATIC HYPOTENSION
     Dosage: 5 MG
     Dates: start: 20061023, end: 20061219
  2. DIGOXIN [Concomitant]
  3. WARFARIN SODIUM [Concomitant]
  4. FLUDROCORTISONE ACETATE [Concomitant]
  5. ASPIRIN /00346701/ (ACETYLSALICYLIC ACID, ASCORBIC ACID) [Concomitant]
  6. GAVISCON /01856301/ (ALGINIC ACID, ALUMINIUM HYDROXIDE, MAGNESIUM TRIS [Concomitant]
  7. SALBUTAMOL (SALBUTAMOL) [Concomitant]
  8. SERETIDE /01434201/ (FLUTICASONE PROPIONATE, SALMETEROL) INHALER [Concomitant]
  9. TIOTROPIUM (TIOTROPIUM) INHALER [Concomitant]
  10. TEMAZEPAM [Concomitant]
  11. CO-CODAMOL (CODEINE PHOSPHATE, PARACETAMOL) [Concomitant]
  12. FOLIC ACID [Concomitant]
  13. TRAMADOL HCL [Concomitant]
  14. OXYBUTON /00054001/ (PHENYLBUTAZONE, PROPYPHENAZONE) [Concomitant]
  15. BUPRENORPHINE HCL [Concomitant]
  16. VITAMIN B12 [Concomitant]

REACTIONS (4)
  - BALLISMUS [None]
  - DISEASE RECURRENCE [None]
  - MOVEMENT DISORDER [None]
  - VITAMIN B12 DECREASED [None]
